FAERS Safety Report 7323942-6 (Version None)
Quarter: 2011Q1

REPORT INFORMATION
  Report Type: 
  Country: None (occurrence: None)
  Receive Date: 20110301
  Receipt Date: 20110218
  Transmission Date: 20110831
  Serious: No
  Sender: FDA-Public Use
  Company Number: B0698720A

PATIENT
  Sex: Male

DRUGS (3)
  1. CALONAL [Concomitant]
     Route: 065
  2. ADOAIR [Concomitant]
     Route: 055
  3. RELENZA [Suspect]
     Indication: INFLUENZA
     Dosage: 20MG PER DAY
     Route: 055
     Dates: start: 20110201, end: 20110202

REACTIONS (6)
  - SLEEP DISORDER [None]
  - SPEECH DISORDER [None]
  - ABNORMAL BEHAVIOUR [None]
  - CHILLS [None]
  - HYPERHIDROSIS [None]
  - AMNESIA [None]
